FAERS Safety Report 15768083 (Version 1)
Quarter: 2018Q4

REPORT INFORMATION
  Report Type: Spontaneous
  Country: RO (occurrence: RO)
  Receive Date: 20181227
  Receipt Date: 20181227
  Transmission Date: 20190205
  Serious: Yes (Death, Hospitalization)
  Sender: FDA-Public Use
  Company Number: RO-MYLANLABS-2018M1096621

PATIENT
  Age: 47 Year
  Sex: Male

DRUGS (2)
  1. VALACYCLOVIR                       /01269701/ [Concomitant]
     Active Substance: VALACYCLOVIR HYDROCHLORIDE
     Indication: OPPORTUNISTIC INFECTION
     Dosage: 500 MILLIGRAM, BID
     Route: 048
  2. CASPOFUNGIN [Suspect]
     Active Substance: CASPOFUNGIN
     Indication: OPPORTUNISTIC INFECTION
     Dosage: 50 MILLIGRAM, QD
     Route: 042

REACTIONS (1)
  - Drug ineffective [Fatal]

NARRATIVE: CASE EVENT DATE: 201803
